FAERS Safety Report 9798246 (Version 1)
Quarter: 2014Q1

REPORT INFORMATION
  Report Type: Spontaneous
  Country: FR (occurrence: FR)
  Receive Date: 20140106
  Receipt Date: 20140106
  Transmission Date: 20141002
  Serious: Yes (Death, Other)
  Sender: FDA-Public Use
  Company Number: FR-CELGENEUS-056-21880-13124499

PATIENT
  Sex: 0

DRUGS (4)
  1. REVLIMID [Suspect]
     Indication: PLASMA CELL LEUKAEMIA
     Dosage: 15 MILLIGRAM
     Route: 048
  2. REVLIMID [Suspect]
     Dosage: 15 MILLIGRAM
     Route: 048
  3. DEXAMETHASONE [Concomitant]
     Indication: PLASMA CELL LEUKAEMIA
     Route: 065
  4. BORTEZOMIB [Concomitant]
     Indication: PLASMA CELL LEUKAEMIA
     Route: 065

REACTIONS (4)
  - Death [Fatal]
  - Plasmacytoma [Unknown]
  - Haematotoxicity [Unknown]
  - Infection [Unknown]
